FAERS Safety Report 17031477 (Version 9)
Quarter: 2021Q3

REPORT INFORMATION
  Report Type: Spontaneous
  Country: US (occurrence: US)
  Receive Date: 20191114
  Receipt Date: 20210924
  Transmission Date: 20211014
  Serious: No
  Sender: FDA-Public Use
  Company Number: US-PFIZER INC-2019491312

PATIENT
  Age: 81 Year
  Sex: Male
  Weight: 92.99 kg

DRUGS (13)
  1. ROSUVASTATIN. [Concomitant]
     Active Substance: ROSUVASTATIN
     Indication: MYOCARDIAL INFARCTION
     Dosage: 5 MG, 1X/DAY (5MG, TABLET, BY MOUTH, AT NIGHT)
     Route: 048
  2. ROSUVASTATIN. [Concomitant]
     Active Substance: ROSUVASTATIN
     Indication: CARDIAC DISORDER
  3. LOPERAMIDE HYDROCHLORIDE. [Concomitant]
     Active Substance: LOPERAMIDE HYDROCHLORIDE
     Indication: ANAL INCONTINENCE
     Dosage: 4 MG, DAILY (2MG, TABLET, BY MOUTH, TWICE DAILY (ONCE IN THE MORNING ONCE AT NIGHT))
     Route: 048
  4. TOVIAZ [Suspect]
     Active Substance: FESOTERODINE FUMARATE
     Indication: BLADDER DISORDER
     Dosage: 8 MG, 1X/DAY (ONCE DAILY)
     Route: 048
     Dates: start: 2018, end: 201808
  5. BAYER ASPIRIN [Concomitant]
     Active Substance: ASPIRIN
     Dosage: 81 MG, 1X/DAY (81MG, TABLET, BY MOUTH, ONCE DAILY)
     Route: 048
  6. PLAVIX [Concomitant]
     Active Substance: CLOPIDOGREL BISULFATE
     Indication: CARDIAC DISORDER
  7. TOVIAZ [Suspect]
     Active Substance: FESOTERODINE FUMARATE
     Dosage: 4 MG, 1X/DAY
     Route: 048
     Dates: start: 2018
  8. TOVIAZ [Suspect]
     Active Substance: FESOTERODINE FUMARATE
     Dosage: 4 MG, 2X/DAY
     Route: 048
  9. LISINOPRIL. [Concomitant]
     Active Substance: LISINOPRIL
     Indication: CARDIAC DISORDER
     Dosage: 40 MG, 1X/DAY (40MG, TABLET, BY MOUTH, ONCE DAILY)
  10. PLAVIX [Concomitant]
     Active Substance: CLOPIDOGREL BISULFATE
     Indication: CEREBROVASCULAR ACCIDENT
     Dosage: 75 MG, 1X/DAY (75MG, TABLET, BY MOUTH, ONCE DAILY)
     Route: 048
  11. ATENOLOL. [Concomitant]
     Active Substance: ATENOLOL
     Indication: CARDIAC DISORDER
     Dosage: 25 MG, 1X/DAY (25MG, TABLET, BY MOUTH, ONCE DAILY)
     Route: 048
  12. ALPRAZOLAM. [Concomitant]
     Active Substance: ALPRAZOLAM
     Indication: INSOMNIA
     Dosage: 0.25 MG, 1X/DAY (0.25MG, TABLET, BY MOUTH, ONCE AT NIGHT)
     Route: 048
  13. KONSYL ORIGINAL FORMULA PSYLLIUM FIBER [Concomitant]
     Active Substance: PSYLLIUM HUSK
     Indication: ANAL INCONTINENCE
     Dosage: UNK (1 TEASPOON, BY MOUTH)
     Route: 048

REACTIONS (4)
  - Gastrointestinal disorder [Unknown]
  - Dyspepsia [Unknown]
  - Drug ineffective [Unknown]
  - Off label use [Unknown]
